FAERS Safety Report 4336716-5 (Version None)
Quarter: 2004Q1

REPORT INFORMATION
  Report Type: 
  Country: None (occurrence: None)
  Receive Date: 20040329
  Receipt Date: 20040129
  Transmission Date: 20041129
  Serious: No
  Sender: FDA-Public Use
  Company Number: USA040158061

PATIENT
  Age: 12 Year
  Sex: Male
  Weight: 36 kg

DRUGS (2)
  1. STRATTERA [Suspect]
     Indication: ATTENTION DEFICIT/HYPERACTIVITY DISORDER
     Dosage: 40 MG/DAY
  2. PROTONIX [Concomitant]

REACTIONS (4)
  - ANOREXIA [None]
  - DIZZINESS [None]
  - HEADACHE [None]
  - THROAT IRRITATION [None]
